FAERS Safety Report 8800737 (Version 2)
Quarter: 2012Q4

REPORT INFORMATION
  Report Type: 
  Country: KR (occurrence: KR)
  Receive Date: 20120921
  Receipt Date: 20121012
  Transmission Date: 20130627
  Serious: Yes (Death)
  Sender: FDA-Public Use
  Company Number: KR-ASTRAZENECA-2012SE72599

PATIENT
  Age: 20 Year
  Sex: Female

DRUGS (2)
  1. PROPOFOL [Suspect]
     Route: 042
  2. THIOPENTAL [Suspect]

REACTIONS (2)
  - Completed suicide [Fatal]
  - Poisoning [Fatal]
